FAERS Safety Report 7753758-8 (Version None)
Quarter: 2011Q3

REPORT INFORMATION
  Report Type: 
  Country: None (occurrence: None)
  Receive Date: 20110913
  Receipt Date: 20110909
  Transmission Date: 20111222
  Serious: Yes (Death)
  Sender: FDA-Public Use
  Company Number: 2011SP027319

PATIENT
  Age: 73 Year
  Sex: Female
  Weight: 47.5 kg

DRUGS (9)
  1. SULFAMETHOXAZOLE [Concomitant]
  2. MAGMITT [Concomitant]
  3. KYTRIL [Concomitant]
  4. MUCOSTA [Concomitant]
  5. TEMODAL [Suspect]
     Indication: GLIOBLASTOMA MULTIFORME
     Dosage: 150 MG/M2;PO 200 MG/M2;PO
     Route: 048
     Dates: start: 20070220, end: 20070224
  6. TEMODAL [Suspect]
     Indication: NEOPLASM RECURRENCE
     Dosage: 150 MG/M2;PO 200 MG/M2;PO
     Route: 048
     Dates: start: 20070220, end: 20070224
  7. TEMODAL [Suspect]
     Indication: GLIOBLASTOMA MULTIFORME
     Dosage: 150 MG/M2;PO 200 MG/M2;PO
     Route: 048
     Dates: start: 20070320, end: 20071103
  8. TEMODAL [Suspect]
     Indication: NEOPLASM RECURRENCE
     Dosage: 150 MG/M2;PO 200 MG/M2;PO
     Route: 048
     Dates: start: 20070320, end: 20071103
  9. MOTILIUM [Concomitant]

REACTIONS (1)
  - DEATH [None]
